FAERS Safety Report 5556172-9 (Version None)
Quarter: 2007Q4

REPORT INFORMATION
  Report Type: 
  Country: None (occurrence: None)
  Receive Date: 20071211
  Receipt Date: 20071128
  Transmission Date: 20080405
  Serious: Yes (Hospitalization)
  Sender: FDA-Public Use
  Company Number: GXBR2007US01909

PATIENT
  Age: 54 Year
  Sex: Female
  Weight: 86.2 kg

DRUGS (5)
  1. SULFADIAZINE [Suspect]
     Indication: TOXOPLASMOSIS
     Dosage: 500 MG, QID2SDO, ORAL
     Route: 048
     Dates: start: 20071015, end: 20071029
  2. LEUCOVORIN CALCIUM [Concomitant]
  3. DARAPRIM [Concomitant]
  4. ZOCOR [Concomitant]
  5. LEVOTHYROXINE SODIUM [Concomitant]

REACTIONS (11)
  - ASTHENIA [None]
  - BACK PAIN [None]
  - EMOTIONAL DISTRESS [None]
  - FALL [None]
  - HEAD INJURY [None]
  - PAIN [None]
  - PYREXIA [None]
  - SPINAL FRACTURE [None]
  - URTICARIA [None]
  - VISION BLURRED [None]
  - VISUAL DISTURBANCE [None]
